FAERS Safety Report 4455898-8 (Version None)
Quarter: 2004Q3

REPORT INFORMATION
  Report Type: 
  Country: None (occurrence: None)
  Receive Date: 20040920
  Receipt Date: 20040910
  Transmission Date: 20050211
  Serious: Yes (Hospitalization)
  Sender: FDA-Public Use
  Company Number: 2004IM000856

PATIENT
  Age: 69 Year
  Sex: Female
  Weight: 48.9885 kg

DRUGS (12)
  1. ACTIMMUNE [Suspect]
     Indication: PULMONARY HYPERTENSION
     Dosage: 200 UG; TIW;SUBCUTANEOUS
     Route: 058
     Dates: start: 20030601
  2. ASPIRIN [Concomitant]
  3. PLAVIX [Concomitant]
  4. DIGOXIN [Concomitant]
  5. LOTENSIN [Concomitant]
  6. AZMACORT [Concomitant]
  7. OXYGEN [Concomitant]
  8. PRILOSEC [Concomitant]
  9. SYNTHROID [Concomitant]
  10. PREMARIN [Concomitant]
  11. LOTREL [Concomitant]
  12. TOPROL-XL [Concomitant]

REACTIONS (3)
  - HYPONATRAEMIA [None]
  - NAUSEA [None]
  - PNEUMONIA [None]
